FAERS Safety Report 6457058-8 (Version None)
Quarter: 2009Q4

REPORT INFORMATION
  Report Type: 
  Country: None (occurrence: None)
  Receive Date: 20091125
  Receipt Date: 20091016
  Transmission Date: 20100525
  Serious: Yes (Hospitalization)
  Sender: FDA-Public Use
  Company Number: A0823970A

PATIENT
  Age: 83 Year
  Sex: Female

DRUGS (5)
  1. MELPHALAN [Suspect]
     Indication: DRUG USE FOR UNKNOWN INDICATION
     Route: 065
  2. REVLIMID [Suspect]
     Indication: MULTIPLE MYELOMA
     Dosage: 10MG PER DAY
     Route: 048
     Dates: start: 20090701
  3. NOVOLOG [Concomitant]
  4. LORAZEPAM [Concomitant]
  5. FOSAMAX [Concomitant]

REACTIONS (3)
  - LOBAR PNEUMONIA [None]
  - TRAUMATIC LUNG INJURY [None]
  - WHITE BLOOD CELL COUNT DECREASED [None]
